FAERS Safety Report 7645217-8 (Version None)
Quarter: 2011Q3

REPORT INFORMATION
  Report Type: 
  Country: None (occurrence: None)
  Receive Date: 20110729
  Receipt Date: 20110718
  Transmission Date: 20111222
  Serious: Yes (Life-Threatening, Hospitalization)
  Sender: FDA-Public Use
  Company Number: GB-BRISTOL-MYERS SQUIBB COMPANY-15908601

PATIENT
  Age: 31 Year
  Sex: Female

DRUGS (3)
  1. BENDROFLUMETHIAZIDE [Suspect]
     Indication: ESSENTIAL HYPERTENSION
     Dosage: DOSE INCREASED FROM 2.5 MG TO 5 MG ONCE DAILY:18 MONTHS PREVIOUSLY
  2. MESALAMINE [Suspect]
  3. RAMIPRIL [Suspect]

REACTIONS (2)
  - HYPOKALAEMIA [None]
  - HYPONATRAEMIA [None]
